FAERS Safety Report 14214241 (Version 5)
Quarter: 2018Q1

REPORT INFORMATION
  Report Type: Report from Study
  Country: US (occurrence: US)
  Receive Date: 20171122
  Receipt Date: 20180316
  Transmission Date: 20180508
  Serious: Yes (Death, Other)
  Sender: FDA-Public Use
  Company Number: US-B.I. PHARMACEUTICALS,INC./RIDGEFIELD-2017-BI-012463

PATIENT
  Age: 69 Year
  Sex: Female

DRUGS (26)
  1. LIDODERM [Concomitant]
     Active Substance: LIDOCAINE
     Indication: PRODUCT USED FOR UNKNOWN INDICATION
     Route: 065
  2. TOPROL XL [Concomitant]
     Active Substance: METOPROLOL SUCCINATE
     Indication: PRODUCT USED FOR UNKNOWN INDICATION
     Route: 065
  3. OFEV [Suspect]
     Active Substance: NINTEDANIB
     Route: 048
     Dates: end: 20180129
  4. CALCIUM [Concomitant]
     Active Substance: CALCIUM
     Indication: PRODUCT USED FOR UNKNOWN INDICATION
     Route: 065
  5. MULTIVITAMIN [Concomitant]
     Active Substance: VITAMINS
     Indication: PRODUCT USED FOR UNKNOWN INDICATION
     Route: 065
  6. VITAMIN C [Concomitant]
     Active Substance: ASCORBIC ACID
     Indication: PRODUCT USED FOR UNKNOWN INDICATION
     Route: 065
  7. EXFORGE [Concomitant]
     Active Substance: AMLODIPINE BESYLATE\VALSARTAN
     Indication: PRODUCT USED FOR UNKNOWN INDICATION
     Route: 065
  8. ZEGERID [Concomitant]
     Active Substance: OMEPRAZOLE\SODIUM BICARBONATE
     Indication: PRODUCT USED FOR UNKNOWN INDICATION
     Route: 065
  9. OFEV [Suspect]
     Active Substance: NINTEDANIB
     Route: 048
     Dates: start: 20170209
  10. CYCLOBENZAPRINE. [Concomitant]
     Active Substance: CYCLOBENZAPRINE
     Indication: PRODUCT USED FOR UNKNOWN INDICATION
     Route: 065
  11. NORCO [Concomitant]
     Active Substance: ACETAMINOPHEN\HYDROCODONE BITARTRATE
     Indication: PRODUCT USED FOR UNKNOWN INDICATION
     Route: 065
  12. OCUVITE [Concomitant]
     Active Substance: VITAMINS
     Indication: PRODUCT USED FOR UNKNOWN INDICATION
     Route: 065
  13. PREDNISONE. [Concomitant]
     Active Substance: PREDNISONE
     Indication: PRODUCT USED FOR UNKNOWN INDICATION
     Route: 065
  14. OFEV [Suspect]
     Active Substance: NINTEDANIB
     Indication: IDIOPATHIC PULMONARY FIBROSIS
     Route: 048
     Dates: start: 20170208
  15. OFEV [Suspect]
     Active Substance: NINTEDANIB
     Route: 048
     Dates: start: 20170222, end: 20170321
  16. OFEV [Suspect]
     Active Substance: NINTEDANIB
     Route: 048
     Dates: start: 20170404
  17. BIOTIN [Concomitant]
     Active Substance: BIOTIN
     Indication: PRODUCT USED FOR UNKNOWN INDICATION
     Route: 065
  18. IMURAN [Concomitant]
     Active Substance: AZATHIOPRINE
     Indication: PRODUCT USED FOR UNKNOWN INDICATION
     Route: 065
  19. LIPITOR [Concomitant]
     Active Substance: ATORVASTATIN CALCIUM
     Indication: PRODUCT USED FOR UNKNOWN INDICATION
     Route: 065
  20. SYNTHROID [Concomitant]
     Active Substance: LEVOTHYROXINE SODIUM
     Indication: PRODUCT USED FOR UNKNOWN INDICATION
     Route: 065
  21. ASPIRIN. [Concomitant]
     Active Substance: ASPIRIN
     Indication: PRODUCT USED FOR UNKNOWN INDICATION
     Route: 065
  22. DHEA [Concomitant]
     Active Substance: PRASTERONE
     Indication: PRODUCT USED FOR UNKNOWN INDICATION
     Route: 065
  23. OFEV [Suspect]
     Active Substance: NINTEDANIB
     Route: 048
     Dates: end: 201707
  24. TRAZODONE [Concomitant]
     Active Substance: TRAZODONE HYDROCHLORIDE
     Indication: PRODUCT USED FOR UNKNOWN INDICATION
     Route: 065
  25. BUPROPION. [Concomitant]
     Active Substance: BUPROPION
     Indication: PRODUCT USED FOR UNKNOWN INDICATION
     Route: 065
  26. CYMBALTA [Concomitant]
     Active Substance: DULOXETINE HYDROCHLORIDE
     Indication: PRODUCT USED FOR UNKNOWN INDICATION
     Route: 065

REACTIONS (20)
  - Vomiting [Not Recovered/Not Resolved]
  - Hepatic enzyme increased [Unknown]
  - Extra dose administered [Unknown]
  - Vomiting [Unknown]
  - Influenza like illness [Not Recovered/Not Resolved]
  - Liver function test increased [Recovered/Resolved]
  - Feeding disorder [Unknown]
  - Gastrointestinal disorder [Not Recovered/Not Resolved]
  - Productive cough [Not Recovered/Not Resolved]
  - Urinary tract infection [Not Recovered/Not Resolved]
  - Idiopathic pulmonary fibrosis [Fatal]
  - Malaise [Unknown]
  - Constipation [Not Recovered/Not Resolved]
  - Diarrhoea [Unknown]
  - Diarrhoea [Not Recovered/Not Resolved]
  - Nausea [Recovered/Resolved with Sequelae]
  - Nausea [Not Recovered/Not Resolved]
  - Cough [Unknown]
  - Decreased appetite [Unknown]
  - Decreased appetite [Not Recovered/Not Resolved]

NARRATIVE: CASE EVENT DATE: 201703
